FAERS Safety Report 6432835-8 (Version None)
Quarter: 2009Q4

REPORT INFORMATION
  Report Type: 
  Country: None (occurrence: None)
  Receive Date: 20091109
  Receipt Date: 20091030
  Transmission Date: 20100525
  Serious: Yes (Hospitalization)
  Sender: FDA-Public Use
  Company Number: B0598225A

PATIENT
  Age: 60 Year
  Sex: Female

DRUGS (1)
  1. VALTREX [Suspect]
     Indication: HERPES ZOSTER
     Dosage: 1000MG TWICE PER DAY
     Route: 048
     Dates: start: 20070709, end: 20090711

REACTIONS (3)
  - DYSARTHRIA [None]
  - ENCEPHALOPATHY [None]
  - INCOHERENT [None]
